FAERS Safety Report 12675585 (Version 1)
Quarter: 2016Q3

REPORT INFORMATION
  Report Type: Spontaneous
  Country: DE (occurrence: DE)
  Receive Date: 20160823
  Receipt Date: 20160823
  Transmission Date: 20161109
  Serious: Yes (Congenital Anomaly, Other)
  Sender: FDA-Public Use
  Company Number: DE-SUN PHARMACEUTICAL INDUSTRIES LTD-2016R1-122467

PATIENT
  Age: 1 Day
  Sex: Male
  Weight: 2.57 kg

DRUGS (4)
  1. PENTASA XTEND [Suspect]
     Active Substance: MESALAMINE
     Indication: COLITIS ULCERATIVE
     Dosage: 2000 MG, DAILY
     Route: 064
     Dates: start: 20140629, end: 20150329
  2. PARACETAMOL [Concomitant]
     Active Substance: ACETAMINOPHEN
     Indication: RESPIRATORY TRACT INFECTION
     Route: 064
  3. ORTHOMOL NATAL [Concomitant]
     Indication: PROPHYLAXIS OF NEURAL TUBE DEFECT
     Route: 064
  4. PARACETAMOL [Suspect]
     Active Substance: ACETAMINOPHEN
     Indication: ANKLE FRACTURE
     Dosage: 1500 MG, DAILY
     Route: 064

REACTIONS (6)
  - Congenital umbilical hernia [Unknown]
  - Cryptorchism [Recovered/Resolved with Sequelae]
  - Penoscrotal transposition [Not Recovered/Not Resolved]
  - Hypospadias [Not Recovered/Not Resolved]
  - Dermoid cyst [Not Recovered/Not Resolved]
  - Small for dates baby [Recovered/Resolved]

NARRATIVE: CASE EVENT DATE: 20150329
